FAERS Safety Report 11254404 (Version 5)
Quarter: 2015Q3

REPORT INFORMATION
  Report Type: Spontaneous
  Country: GB (occurrence: GB)
  Receive Date: 20150709
  Receipt Date: 20150908
  Transmission Date: 20151125
  Serious: Yes (Other)
  Sender: FDA-Public Use
  Company Number: GB-JNJFOC-20150705821

PATIENT
  Age: 75 Year
  Sex: Male

DRUGS (1)
  1. XARELTO [Suspect]
     Active Substance: RIVAROXABAN
     Indication: PRODUCT USED FOR UNKNOWN INDICATION
     Route: 048

REACTIONS (13)
  - Pain in extremity [Unknown]
  - Arthralgia [Recovered/Resolved]
  - Paraesthesia [Unknown]
  - Lethargy [Unknown]
  - Epistaxis [Unknown]
  - Renal pain [Unknown]
  - Hypoaesthesia [Unknown]
  - Gingival bleeding [Unknown]
  - Chest pain [Unknown]
  - Gastrointestinal pain [Unknown]
  - Wrong technique in product usage process [Unknown]
  - Headache [Unknown]
  - Asthenia [Unknown]
